FAERS Safety Report 4596369-8 (Version None)
Quarter: 2005Q1

REPORT INFORMATION
  Report Type: 
  Country: None (occurrence: None)
  Receive Date: 20050228
  Receipt Date: 20050214
  Transmission Date: 20050727
  Serious: Yes (Hospitalization)
  Sender: FDA-Public Use
  Company Number: 2005022230

PATIENT
  Age: 90 Year
  Sex: Female
  Weight: 40 kg

DRUGS (8)
  1. ZOLOFT [Suspect]
     Indication: DEPRESSION
     Dosage: 50 MG (50 MG, 1 IN 1 D) ORAL
     Route: 048
     Dates: start: 20041129, end: 20041209
  2. MACROGOL [Concomitant]
  3. MORPHINE SULFATE [Concomitant]
  4. NIF-TEN ^IMPERIAL^ [Concomitant]
  5. CLARITHROMYCIN [Concomitant]
  6. ATENOLOL [Concomitant]
  7. PARACETAMOL [Concomitant]
  8. MEPROBAMATE [Concomitant]

REACTIONS (2)
  - CONFUSIONAL STATE [None]
  - FALL [None]
